FAERS Safety Report 10951958 (Version 1)
Quarter: 2015Q1

REPORT INFORMATION
  Report Type: Spontaneous
  Country: CA (occurrence: US)
  Receive Date: 20150325
  Receipt Date: 20150325
  Transmission Date: 20150721
  Serious: Yes (Death, Hospitalization)
  Sender: FDA-Public Use
  Company Number: CA-JNJFOC-20150315098

PATIENT
  Age: 24 Month
  Sex: Male

DRUGS (1)
  1. TYLENOL CHILD SUSP LIQ STRAWBERRY [Suspect]
     Active Substance: ACETAMINOPHEN
     Indication: PYREXIA
     Route: 065
     Dates: start: 20100722

REACTIONS (2)
  - Haemoptysis [Unknown]
  - Hepatic failure [Fatal]

NARRATIVE: CASE EVENT DATE: 20100722
